FAERS Safety Report 8361194-9 (Version None)
Quarter: 2012Q2

REPORT INFORMATION
  Report Type: 
  Country: None (occurrence: None)
  Receive Date: 20120515
  Receipt Date: 20120507
  Transmission Date: 20120825
  Serious: Yes (Hospitalization, Other)
  Sender: FDA-Public Use
  Company Number: US-BAYER-2012-016309

PATIENT
  Age: 32 Year
  Sex: Female

DRUGS (1)
  1. MIRENA [Suspect]
     Indication: ENDOMETRIOSIS
     Dosage: 20 MCG/24HR, CONT
     Route: 015
     Dates: start: 20110901, end: 20120503

REACTIONS (8)
  - GENITAL HAEMORRHAGE [None]
  - CHOLECYSTECTOMY [None]
  - ADNEXA UTERI PAIN [None]
  - PYREXIA [None]
  - POST PROCEDURAL HAEMORRHAGE [None]
  - COITAL BLEEDING [None]
  - DEVICE DISLOCATION [None]
  - SUNBURN [None]
